FAERS Safety Report 22253228 (Version 1)
Quarter: 2023Q2

REPORT INFORMATION
  Report Type: Report from Study
  Country: BR (occurrence: BR)
  Receive Date: 20230426
  Receipt Date: 20230426
  Transmission Date: 20230722
  Serious: Yes (Hospitalization, Other)
  Sender: FDA-Public Use
  Company Number: BR-JNJFOC-20230453994

PATIENT
  Age: 4 Decade
  Sex: Female
  Weight: 57 kg

DRUGS (1)
  1. INFLIXIMAB [Suspect]
     Active Substance: INFLIXIMAB
     Indication: Crohn^s disease
     Route: 041
     Dates: start: 20211206, end: 202202

REACTIONS (4)
  - Pneumonia [Unknown]
  - Tuberculosis [Unknown]
  - Crohn^s disease [Unknown]
  - Lymphadenectomy [Unknown]
